FAERS Safety Report 5851878-6 (Version None)
Quarter: 2008Q3

REPORT INFORMATION
  Report Type: 
  Country: None (occurrence: None)
  Receive Date: 20080819
  Receipt Date: 20080808
  Transmission Date: 20090109
  Serious: Yes (Other)
  Sender: FDA-Public Use
  Company Number: GXKR2008GB07505

PATIENT
  Age: 10 Year
  Sex: Male

DRUGS (3)
  1. CYCLOSPORINE [Suspect]
     Indication: GRAFT VERSUS HOST DISEASE
     Dosage: UNKNOWN
     Route: 065
  2. PREDNISOLONE [Suspect]
     Indication: GRAFT VERSUS HOST DISEASE
     Dosage: UNKNOWN
  3. TACROLIMUS [Concomitant]

REACTIONS (7)
  - EPSTEIN-BARR VIRUS ASSOCIATED LYMPHOPROLIFERATIVE DISORDER [None]
  - EPSTEIN-BARR VIRUS TEST POSITIVE [None]
  - GOITRE [None]
  - HYPOTHYROIDISM [None]
  - PSORIASIS [None]
  - RASH PRURITIC [None]
  - TRACHEAL OBSTRUCTION [None]
